FAERS Safety Report 5400823-6 (Version None)
Quarter: 2007Q3

REPORT INFORMATION
  Report Type: 
  Country: None (occurrence: None)
  Receive Date: 20070725
  Receipt Date: 20070717
  Transmission Date: 20080115
  Serious: Yes (Hospitalization, Other)
  Sender: FDA-Public Use
  Company Number: 163-21880-07051508

PATIENT
  Age: 64 Year
  Sex: Female

DRUGS (5)
  1. REVLIMID [Suspect]
     Indication: MULTIPLE MYELOMA
     Dosage: 25 MG, DAILY, ORAL
     Route: 048
     Dates: start: 20070304, end: 20070311
  2. DEXAMETHASONE TAB [Concomitant]
  3. PREVACID [Concomitant]
  4. VALTREX [Concomitant]
  5. LOVENOX [Concomitant]

REACTIONS (9)
  - BLOOD ALKALINE PHOSPHATASE INCREASED [None]
  - HAEMATOCRIT DECREASED [None]
  - HAEMOGLOBIN DECREASED [None]
  - HYPERBILIRUBINAEMIA [None]
  - LIVER DISORDER [None]
  - LIVER FUNCTION TEST ABNORMAL [None]
  - NEUTROPHIL COUNT DECREASED [None]
  - RASH GENERALISED [None]
  - WHITE BLOOD CELL COUNT DECREASED [None]
